FAERS Safety Report 23239439 (Version 4)
Quarter: 2024Q1

REPORT INFORMATION
  Report Type: Report from Study
  Country: CO (occurrence: CO)
  Receive Date: 20231129
  Receipt Date: 20240102
  Transmission Date: 20240410
  Serious: Yes (Hospitalization, Other)
  Sender: FDA-Public Use
  Company Number: CO-UCBSA-2022063804

PATIENT
  Age: 68 Year
  Sex: Female
  Weight: 52 kg

DRUGS (8)
  1. CERTOLIZUMAB PEGOL [Suspect]
     Active Substance: CERTOLIZUMAB PEGOL
     Indication: Rheumatoid arthritis
     Dosage: 400 MILLIGRAM, EV 30 DAYS
     Route: 058
     Dates: start: 20220128, end: 20230401
  2. CERTOLIZUMAB PEGOL [Suspect]
     Active Substance: CERTOLIZUMAB PEGOL
     Dosage: 400 MILLIGRAM, EV 30 DAYS
     Route: 058
     Dates: start: 20230727, end: 20231019
  3. METHOTREXATE [Concomitant]
     Active Substance: METHOTREXATE
     Indication: Rheumatoid arthritis
     Dosage: UNK
  4. CHLOROQUINE [Concomitant]
     Active Substance: CHLOROQUINE
     Indication: Rheumatoid arthritis
     Dosage: UNK
  5. MESALAMINE [Concomitant]
     Active Substance: MESALAMINE
     Indication: Rheumatoid arthritis
     Dosage: UNK
  6. TRIMEBUTINA [TRIMEBUTINE] [Concomitant]
     Indication: Rheumatoid arthritis
     Dosage: UNK
  7. PREDNISOLONE [Concomitant]
     Active Substance: PREDNISOLONE
     Indication: Product used for unknown indication
     Dosage: UNK
  8. BUTYLSCOPOLAMINE BROMIDE [Concomitant]
     Active Substance: BUTYLSCOPOLAMINE BROMIDE
     Indication: Product used for unknown indication
     Dosage: UNK

REACTIONS (11)
  - Inflammation [Not Recovered/Not Resolved]
  - Dyspnoea [Recovered/Resolved]
  - Chest pain [Recovered/Resolved]
  - Abdominal pain upper [Recovered/Resolved]
  - Asthmatic crisis [Recovered/Resolved]
  - Bronchitis [Recovered/Resolved]
  - Pain in extremity [Recovering/Resolving]
  - Therapy interrupted [Unknown]
  - Product distribution issue [Unknown]
  - Product use issue [Unknown]
  - Off label use [Unknown]

NARRATIVE: CASE EVENT DATE: 20220128
